FAERS Safety Report 12841850 (Version 1)
Quarter: 2016Q4

REPORT INFORMATION
  Report Type: Spontaneous
  Country: US (occurrence: US)
  Receive Date: 20161012
  Receipt Date: 20161012
  Transmission Date: 20170207
  Serious: Yes (Hospitalization)
  Sender: FDA-Public Use
  Company Number: US-BEH-2016074079

PATIENT
  Sex: Male
  Weight: 86.17 kg

DRUGS (5)
  1. BERINERT [Suspect]
     Active Substance: HUMAN C1-ESTERASE INHIBITOR
     Indication: HEREDITARY ANGIOEDEMA
     Dosage: 2000 IU, BIW
     Route: 042
     Dates: start: 20140715
  2. COUMADIN [Concomitant]
     Active Substance: WARFARIN SODIUM
  3. METOPROLOL. [Concomitant]
     Active Substance: METOPROLOL
  4. SODIUM CHLORIDE. [Concomitant]
     Active Substance: SODIUM CHLORIDE
  5. EPIPEN [Concomitant]
     Active Substance: EPINEPHRINE

REACTIONS (1)
  - Vena cava filter removal [Unknown]
